FAERS Safety Report 9842175 (Version 1)
Quarter: 2014Q1

REPORT INFORMATION
  Report Type: Spontaneous
  Country: US (occurrence: US)
  Receive Date: 20140124
  Receipt Date: 20140124
  Transmission Date: 20141002
  Serious: Yes (Hospitalization)
  Sender: FDA-Public Use
  Company Number: US-GLAXOSMITHKLINE-A1032788A

PATIENT
  Age: 50 Year
  Sex: Male

DRUGS (1)
  1. AVANDIA [Suspect]
     Indication: DIABETES MELLITUS
     Dosage: 4MG TWICE PER DAY
     Route: 048
     Dates: start: 200501, end: 20070316

REACTIONS (5)
  - Myocardial ischaemia [Unknown]
  - Brain stem infarction [Unknown]
  - Brain stem stroke [Unknown]
  - Brain stem stroke [Unknown]
  - Transient ischaemic attack [Unknown]
